FAERS Safety Report 13834658 (Version 1)
Quarter: 2017Q3

REPORT INFORMATION
  Report Type: Report from Study
  Country: US (occurrence: US)
  Receive Date: 20170804
  Receipt Date: 20170804
  Transmission Date: 20171127
  Serious: Yes (Other)
  Sender: FDA-Public Use
  Company Number: US-ROCHE-1971527

PATIENT
  Sex: Female

DRUGS (2)
  1. CELLCEPT [Suspect]
     Active Substance: MYCOPHENOLATE MOFETIL\MYCOPHENOLATE MOFETIL HYDROCHLORIDE
     Indication: INTERSTITIAL LUNG DISEASE
     Dosage: 500MG: TAKE 500MG PO TWICE DAILY X 7 DAYS THEN
     Route: 048
  2. CELLCEPT [Suspect]
     Active Substance: MYCOPHENOLATE MOFETIL\MYCOPHENOLATE MOFETIL HYDROCHLORIDE
     Indication: INTERSTITIAL LUNG DISEASE
     Dosage: 500MG TAKE 1000MG PO TWICE DAILY
     Route: 048
     Dates: start: 20170619

REACTIONS (20)
  - Vertebroplasty [Unknown]
  - Bronchiectasis [Unknown]
  - Dyspnoea [Unknown]
  - Dyspepsia [Unknown]
  - Psoriasis [Unknown]
  - Off label use [Unknown]
  - Computerised tomogram thorax abnormal [Unknown]
  - Nausea [Unknown]
  - Joint range of motion decreased [Unknown]
  - Back pain [Unknown]
  - Blood glucose increased [Unknown]
  - Anxiety [Unknown]
  - Weight increased [Unknown]
  - Back injury [Unknown]
  - Intentional product use issue [Unknown]
  - Pain [Unknown]
  - Vomiting [Unknown]
  - Abdominal pain [Unknown]
  - Synovitis [Unknown]
  - Spinal compression fracture [Unknown]
